FAERS Safety Report 7801971 (Version 3)
Quarter: 2016Q1

REPORT INFORMATION
  Report Type: Report from Study
  Country: NL (occurrence: NL)
  Receive Date: 20110207
  Receipt Date: 20160325
  Transmission Date: 20160526
  Serious: Yes (Hospitalization)
  Sender: FDA-Public Use
  Company Number: NL-ROCHE-756439

PATIENT
  Age: 53 Year
  Sex: Female

DRUGS (3)
  1. CANDESARTAN [Suspect]
     Active Substance: CANDESARTAN
     Indication: CARDIOTOXICITY
     Route: 048
     Dates: start: 20101105, end: 20101112
  2. CANDESARTAN [Suspect]
     Active Substance: CANDESARTAN
     Route: 048
  3. TRASTUZUMAB [Suspect]
     Active Substance: TRASTUZUMAB
     Indication: BREAST CANCER
     Dosage: LOADING DOSE FOLLOWED BY MAINTAINENCE DOSE.
     Route: 065

REACTIONS (1)
  - Radiation skin injury [Recovered/Resolved]

NARRATIVE: CASE EVENT DATE: 20101216
